FAERS Safety Report 9882069 (Version 1)
Quarter: 2014Q1

REPORT INFORMATION
  Report Type: Spontaneous
  Country: US (occurrence: None)
  Receive Date: 20140205
  Receipt Date: 20140205
  Transmission Date: 20141002
  Serious: Yes (Death, Hospitalization)
  Sender: FDA-Public Use
  Company Number: IMP_07446_2014

PATIENT
  Age: 64 Year
  Sex: Female

DRUGS (5)
  1. ALPRAZOLAM [Suspect]
     Indication: PRODUCT USED FOR UNKNOWN INDICATION
     Dosage: NOT THE PRESCRIBED OSE
     Route: 048
  2. DILTIAZEM [Suspect]
     Indication: PRODUCT USED FOR UNKNOWN INDICATION
     Dosage: NOT THE PRESCRIBE DOSE, EXTENDED RELEASE
     Route: 048
  3. METOPROLOL [Suspect]
     Indication: PRODUCT USED FOR UNKNOWN INDICATION
     Dosage: NOT THE PRESCRIBED DOSE, EXTENDED RELEASE
     Route: 048
  4. SITAGLIPTIN [Suspect]
     Indication: PRODUCT USED FOR UNKNOWN INDICATION
     Dosage: NOT THE PRESCRIBED DOSE
     Route: 048
  5. CITALOPRAM [Suspect]
     Indication: PRODUCT USED FOR UNKNOWN INDICATION
     Dosage: NOT THE PRESCRIBED DOSE
     Route: 048

REACTIONS (13)
  - Completed suicide [None]
  - Unresponsive to stimuli [None]
  - Hypertension [None]
  - Hypotension [None]
  - Mydriasis [None]
  - Acidosis [None]
  - Anuria [None]
  - Thrombocytopenia [None]
  - Tachycardia [None]
  - Atrial fibrillation [None]
  - Poor peripheral circulation [None]
  - Agitation [None]
  - Toxicity to various agents [None]
